FAERS Safety Report 9558318 (Version 1)
Quarter: 2013Q3

REPORT INFORMATION
  Report Type: Report from Study
  Country: DE (occurrence: DE)
  Receive Date: 20130926
  Receipt Date: 20130926
  Transmission Date: 20140515
  Serious: Yes (Hospitalization)
  Sender: FDA-Public Use
  Company Number: DE-SANOFI-AVENTIS-THYM-1003597

PATIENT
  Age: 69 Year
  Sex: Female
  Weight: 79 kg

DRUGS (30)
  1. THYMOGLOBULINE [Suspect]
     Indication: IMMUNOSUPPRESSION
     Dosage: 125 MG, QD
     Route: 042
     Dates: start: 20091007
  2. TACROLIMUS [Suspect]
     Indication: IMMUNOSUPPRESSION
     Dosage: 16 MG, QD
     Route: 048
     Dates: start: 20091007
  3. TACROLIMUS [Suspect]
     Indication: IMMUNOSUPPRESSION
     Dosage: 4 MG, QD
     Route: 048
  4. TACROLIMUS [Suspect]
     Indication: IMMUNOSUPPRESSION
     Dosage: 8 MG, QD
     Route: 048
     Dates: end: 20091122
  5. TACROLIMUS [Suspect]
     Indication: IMMUNOSUPPRESSION
  6. MYCOPHENOLATE MOFETIL [Suspect]
     Indication: IMMUNOSUPPRESSION
     Dosage: 1000 MG, BID
     Route: 048
     Dates: start: 20091007
  7. MYCOPHENOLATE MOFETIL [Suspect]
     Indication: IMMUNOSUPPRESSION
     Dosage: 500 MG, TID
     Route: 048
  8. MYCOPHENOLATE MOFETIL [Suspect]
     Indication: IMMUNOSUPPRESSION
     Dosage: 500 MG, BID
     Route: 065
  9. PREDNISOLONE [Suspect]
     Indication: IMMUNOSUPPRESSION
     Dosage: 75 MG, QD
     Route: 048
     Dates: start: 20091007
  10. PREDNISOLONE [Suspect]
     Indication: IMMUNOSUPPRESSION
     Dosage: 60 MG, QD
     Route: 048
  11. PREDNISOLONE [Suspect]
     Indication: IMMUNOSUPPRESSION
     Dosage: 20 MG, QD
     Route: 048
  12. ENOXAPARIN SODIUM [Concomitant]
     Dosage: 40 MG, UNK
     Route: 065
     Dates: start: 20091008, end: 20091028
  13. HEPARIN [Concomitant]
     Dosage: UNK
     Route: 065
     Dates: start: 20091007
  14. HEPARIN [Concomitant]
     Dosage: UNK
     Route: 065
     Dates: start: 20091029, end: 20091120
  15. PANTOPRAZOLE SODIUM [Concomitant]
     Dosage: 80 MG, UNK
     Route: 065
     Dates: start: 20091007
  16. PANTOPRAZOLE SODIUM [Concomitant]
     Dates: start: 2009
  17. VALGANCICLOVIR HYDROCHLORIDE [Concomitant]
     Dosage: 400 MG, UNK
     Route: 065
     Dates: start: 20091007
  18. KEPINOL [Concomitant]
     Dosage: 480 MG, 3X/W
     Route: 065
     Dates: start: 20091007
  19. INSULIN [Concomitant]
     Dosage: UNK
     Route: 065
     Dates: start: 20091007
  20. HYDROCHLOROTHIAZIDE [Concomitant]
     Indication: PRODUCT USED FOR UNKNOWN INDICATION
     Dosage: 5 MG, UNK
     Route: 065
     Dates: start: 20091014, end: 20091019
  21. TORASEMIDE [Concomitant]
     Dosage: 5 MG, UNK
     Route: 065
     Dates: start: 2009, end: 2009
  22. TORASEMIDE [Concomitant]
     Dates: start: 2009
  23. METOPROLOL SUCCINATE [Concomitant]
     Dosage: 150 MG, QD
     Route: 065
     Dates: start: 2009, end: 2009
  24. METOPROLOL SUCCINATE [Concomitant]
     Dates: start: 2009
  25. RAMIPRIL [Concomitant]
     Dosage: 10 MG, UNK
     Route: 065
     Dates: start: 2009
  26. GANCICLOVIR SODIUM [Concomitant]
     Dosage: 200 MG, BID
     Route: 065
     Dates: start: 20091024, end: 20091029
  27. GANCICLOVIR SODIUM [Concomitant]
     Dosage: 200 MG, BID
     Route: 065
     Dates: start: 20091024, end: 20091029
  28. GANCICLOVIR SODIUM [Concomitant]
     Dosage: 80 MG, UNK
     Route: 065
     Dates: start: 2009
  29. GANCICLOVIR SODIUM [Concomitant]
     Dosage: 80 MG, UNK
     Route: 065
     Dates: start: 2009
  30. CO-TRIMOXAZOLE [Concomitant]
     Dates: start: 2009

REACTIONS (8)
  - Red blood cell count decreased [Unknown]
  - Transplant rejection [Not Recovered/Not Resolved]
  - Oedema [Unknown]
  - Dyspnoea [Unknown]
  - Impaired healing [Recovered/Resolved]
  - Perirenal haematoma [Recovered/Resolved]
  - Fascial rupture [Recovered/Resolved]
  - Urinary tract infection [Recovered/Resolved with Sequelae]
